FAERS Safety Report 7720829-1 (Version None)
Quarter: 2011Q3

REPORT INFORMATION
  Report Type: 
  Country: None (occurrence: None)
  Receive Date: 20110831
  Receipt Date: 20110825
  Transmission Date: 20111222
  Serious: Yes (Other)
  Sender: FDA-Public Use
  Company Number: GB-BRISTOL-MYERS SQUIBB COMPANY-16008203

PATIENT

DRUGS (1)
  1. IRBESARTAN [Suspect]

REACTIONS (2)
  - DYSPHAGIA [None]
  - OESOPHAGEAL CARCINOMA [None]
